FAERS Safety Report 5582262-0 (Version None)
Quarter: 2008Q1

REPORT INFORMATION
  Report Type: 
  Country: None (occurrence: None)
  Receive Date: 20080104
  Receipt Date: 20071227
  Transmission Date: 20080703
  Serious: Yes (Hospitalization)
  Sender: FDA-Public Use
  Company Number: PT-MERCK-0712PRT00011

PATIENT
  Age: 57 Year
  Sex: Male

DRUGS (8)
  1. ISENTRESS [Suspect]
     Indication: HIV TEST POSITIVE
     Route: 048
     Dates: start: 20071101
  2. ISENTRESS [Suspect]
     Route: 048
     Dates: start: 20071101
  3. EFAVIRENZ [Concomitant]
     Indication: HIV TEST POSITIVE
     Route: 048
  4. ZIDOVUDINE [Concomitant]
     Indication: HIV TEST POSITIVE
     Route: 065
  5. LAMIVUDINE [Concomitant]
     Indication: HIV TEST POSITIVE
     Route: 065
  6. LOPINAVIR AND RITONAVIR [Concomitant]
     Route: 065
  7. AZITHROMYCIN [Concomitant]
     Route: 065
  8. SULFAMETHOXAZOLE AND TRIMETHOPRIM [Concomitant]
     Indication: ANTIBIOTIC PROPHYLAXIS
     Route: 065

REACTIONS (1)
  - DIARRHOEA [None]
